FAERS Safety Report 4887920-9 (Version None)
Quarter: 2006Q1

REPORT INFORMATION
  Report Type: 
  Country: None (occurrence: None)
  Receive Date: 20060123
  Receipt Date: 20060112
  Transmission Date: 20060701
  Serious: Yes (Other)
  Sender: FDA-Public Use
  Company Number: US-MERCK-0601USA01605

PATIENT
  Age: 48 Year
  Sex: Female

DRUGS (2)
  1. TIMOPTIC-XE [Suspect]
     Indication: GLAUCOMA
     Route: 047
     Dates: start: 20030101
  2. LIPITOR [Concomitant]
     Route: 065

REACTIONS (3)
  - ADVERSE EVENT [None]
  - DYSGEUSIA [None]
  - VITREOUS FLOATERS [None]
